FAERS Safety Report 8374449-9 (Version None)
Quarter: 2012Q2

REPORT INFORMATION
  Report Type: 
  Country: None (occurrence: None)
  Receive Date: 20120521
  Receipt Date: 20120507
  Transmission Date: 20120825
  Serious: Yes (Other)
  Sender: FDA-Public Use
  Company Number: US-JNJFOC-20080506026

PATIENT
  Sex: Male
  Weight: 49.9 kg

DRUGS (8)
  1. RISPERDAL [Suspect]
     Route: 048
     Dates: start: 20050101, end: 20050101
  2. RISPERDAL [Suspect]
     Dosage: 50 MG 1/2 IN THE AM AND 1/2 IN PM
     Route: 048
  3. RISPERDAL [Suspect]
     Indication: BRUXISM
     Dosage: 50 MG 1/2 IN THE AM AND 1/2 IN PM
     Route: 048
     Dates: start: 20060101, end: 20110101
  4. EFFEXOR [Concomitant]
     Indication: EMOTIONAL DISORDER
     Route: 048
     Dates: start: 20080101, end: 20080101
  5. RISPERDAL [Suspect]
     Indication: ASPERGER'S DISORDER
     Dosage: 50 MG 1/2 IN THE AM AND 1/2 IN PM
     Route: 048
     Dates: start: 20060101, end: 20110101
  6. RISPERDAL [Suspect]
     Route: 048
     Dates: start: 20050101, end: 20050101
  7. RISPERDAL [Suspect]
     Dosage: 50 MG 1/2 IN THE AM AND 1/2 IN PM
     Route: 048
  8. ASTHMA INHALER [Concomitant]
     Indication: ASTHMA

REACTIONS (35)
  - BIPOLAR I DISORDER [None]
  - PERSONALITY CHANGE [None]
  - ARTHRALGIA [None]
  - WEIGHT INCREASED [None]
  - AGGRESSION [None]
  - HEADACHE [None]
  - INCREASED APPETITE [None]
  - POOR QUALITY SLEEP [None]
  - RESTLESSNESS [None]
  - EAR PAIN [None]
  - ANGER [None]
  - OFF LABEL USE [None]
  - ABNORMAL DREAMS [None]
  - EMOTIONAL DISORDER [None]
  - COUGH [None]
  - SOMNOLENCE [None]
  - EYE MOVEMENT DISORDER [None]
  - RHINITIS [None]
  - ABDOMINAL PAIN UPPER [None]
  - MOOD SWINGS [None]
  - CRYING [None]
  - NAUSEA [None]
  - PSYCHOMOTOR HYPERACTIVITY [None]
  - MYALGIA [None]
  - APATHY [None]
  - DRUG INEFFECTIVE [None]
  - QUALITY OF LIFE DECREASED [None]
  - FATIGUE [None]
  - ANXIETY [None]
  - CONSTIPATION [None]
  - TIC [None]
  - VOMITING [None]
  - SINUSITIS [None]
  - RASH [None]
  - SCREAMING [None]
